FAERS Safety Report 20246875 (Version 1)
Quarter: 2021Q4

REPORT INFORMATION
  Report Type: Spontaneous
  Country: MY (occurrence: MY)
  Receive Date: 20211229
  Receipt Date: 20211229
  Transmission Date: 20220303
  Serious: Yes (Hospitalization, Other)
  Sender: FDA-Public Use
  Company Number: MY-LUPIN PHARMACEUTICALS INC.-2021-25717

PATIENT
  Age: 22 Year
  Sex: Female

DRUGS (5)
  1. RIFAMPIN [Suspect]
     Active Substance: RIFAMPIN
     Indication: Meningitis tuberculous
     Dosage: UNK
     Route: 065
  2. RIFAMPIN [Suspect]
     Active Substance: RIFAMPIN
     Dosage: 15 MILLIGRAM/KILOGRAM
     Route: 065
  3. DEXAMETHASONE [Concomitant]
     Active Substance: DEXAMETHASONE
     Indication: Meningitis tuberculous
     Dosage: 0.4 MILLIGRAM/KILOGRAM
     Route: 065
  4. LEVETIRACETAM [Concomitant]
     Active Substance: LEVETIRACETAM
     Indication: Meningitis tuberculous
     Dosage: 250 MILLIGRAM, BID
     Route: 065
  5. CEFTRIAXONE [Concomitant]
     Active Substance: CEFTRIAXONE
     Indication: Meningitis tuberculous
     Dosage: UNK
     Route: 065

REACTIONS (5)
  - Tuberculoma of central nervous system [Recovering/Resolving]
  - Vasogenic cerebral oedema [Recovering/Resolving]
  - Hydrocephalus [Recovering/Resolving]
  - Condition aggravated [Recovering/Resolving]
  - Paradoxical drug reaction [Recovering/Resolving]
